FAERS Safety Report 14932276 (Version 2)
Quarter: 2018Q3

REPORT INFORMATION
  Report Type: Spontaneous
  Country: US (occurrence: US)
  Receive Date: 20180524
  Receipt Date: 20180808
  Transmission Date: 20181010
  Serious: Yes (Other)
  Sender: FDA-Public Use
  Company Number: US-009507513-1805USA005807

PATIENT
  Age: 27 Year
  Sex: Female
  Weight: 107.94 kg

DRUGS (1)
  1. NEXPLANON [Suspect]
     Active Substance: ETONOGESTREL
     Indication: CONTRACEPTION
     Dosage: 1 ROD/3 YEAR IMPLANT
     Route: 059
     Dates: start: 201706, end: 201804

REACTIONS (10)
  - Paraesthesia [Recovering/Resolving]
  - Hallucination, visual [Recovering/Resolving]
  - Vertigo [Recovering/Resolving]
  - Photophobia [Recovering/Resolving]
  - Palpitations [Recovering/Resolving]
  - Weight increased [Recovering/Resolving]
  - Vomiting [Recovering/Resolving]
  - Blindness [Recovering/Resolving]
  - Nausea [Recovering/Resolving]
  - Vision blurred [Recovering/Resolving]

NARRATIVE: CASE EVENT DATE: 201709
